FAERS Safety Report 7133141-9 (Version None)
Quarter: 2010Q4

REPORT INFORMATION
  Report Type: 
  Country: None (occurrence: None)
  Receive Date: 20101117
  Receipt Date: 20101104
  Transmission Date: 20110411
  Serious: Yes (Hospitalization)
  Sender: FDA-Public Use
  Company Number: 021591

PATIENT
  Sex: Female

DRUGS (5)
  1. LACOSAMIDE [Suspect]
  2. TOPAMAX [Concomitant]
  3. DEPAKOTE [Concomitant]
  4. TRILEPTAL [Concomitant]
  5. LAMICTAL [Concomitant]

REACTIONS (1)
  - CARDIAC ARREST [None]
